FAERS Safety Report 14392365 (Version 9)
Quarter: 2018Q3

REPORT INFORMATION
  Report Type: Spontaneous
  Country: PL (occurrence: PL)
  Receive Date: 20180116
  Receipt Date: 20180924
  Transmission Date: 20181010
  Serious: Yes (Hospitalization, Other)
  Sender: FDA-Public Use
  Company Number: PL-MYLANLABS-2018M1002486

PATIENT
  Age: 35 Year
  Sex: Male

DRUGS (34)
  1. OMEGA?3 FATTY ACIDS [Suspect]
     Active Substance: OMEGA-3 FATTY ACIDS
     Indication: HYPERTRIGLYCERIDAEMIA
     Dosage: UNK
     Route: 065
  2. FENOFIBRATE. [Concomitant]
     Active Substance: FENOFIBRATE
     Dosage: 267 MG, UNK
     Route: 065
  3. RITONAVIR. [Concomitant]
     Active Substance: RITONAVIR
     Indication: HIV INFECTION
  4. ATAZANAVIR. [Concomitant]
     Active Substance: ATAZANAVIR SULFATE
     Dosage: UNK
  5. ROSUVASTATIN. [Concomitant]
     Active Substance: ROSUVASTATIN
     Dosage: 40 MG, UNK
  6. ABACAVIR. [Concomitant]
     Active Substance: ABACAVIR
     Dosage: UNK
     Route: 065
  7. ABACAVIR. [Concomitant]
     Active Substance: ABACAVIR
     Indication: ANTIRETROVIRAL THERAPY
  8. TENOFOVIR [Concomitant]
     Active Substance: TENOFOVIR
     Indication: ANTIRETROVIRAL THERAPY
     Dosage: UNK
     Route: 065
  9. DARUNAVIR [Concomitant]
     Active Substance: DARUNAVIR
     Indication: HIV INFECTION
  10. RITONAVIR. [Concomitant]
     Active Substance: RITONAVIR
     Dosage: UNK
     Route: 065
  11. VIREAD [Concomitant]
     Active Substance: TENOFOVIR DISOPROXIL FUMARATE
     Dosage: UNK
  12. EMTRICITABINE W/TENOFOVIR [Concomitant]
     Active Substance: EMTRICITABINE\TENOFOVIR DISOPROXIL
     Indication: ANTIRETROVIRAL THERAPY
     Dosage: UNK
  13. ATAZANAVIR. [Concomitant]
     Active Substance: ATAZANAVIR SULFATE
     Indication: HYPERTRIGLYCERIDAEMIA
  14. EMTRIVA [Concomitant]
     Active Substance: EMTRICITABINE
     Indication: ANTIRETROVIRAL THERAPY
     Dosage: UNK
  15. ATORVASTATIN [Suspect]
     Active Substance: ATORVASTATIN
     Dosage: 40 MG, UNK
     Route: 065
  16. DARUNAVIR [Concomitant]
     Active Substance: DARUNAVIR
     Dosage: UNK
     Route: 065
  17. ABACAVIR. [Concomitant]
     Active Substance: ABACAVIR
     Indication: HIV INFECTION
  18. ATAZANAVIR. [Concomitant]
     Active Substance: ATAZANAVIR SULFATE
     Indication: ANTIRETROVIRAL THERAPY
  19. LAMIVUDINE. [Concomitant]
     Active Substance: LAMIVUDINE
     Indication: ANTIRETROVIRAL THERAPY
  20. LAMIVUDINE. [Concomitant]
     Active Substance: LAMIVUDINE
     Indication: HIV INFECTION
  21. BIOCARDINE OMEGA 3 [Concomitant]
     Active Substance: DOCONEXENT\ICOSAPENT\OMEGA-3 FATTY ACIDS
     Indication: HYPERTRIGLYCERIDAEMIA
  22. EMTRIVA [Concomitant]
     Active Substance: EMTRICITABINE
     Dosage: UNK
  23. ABACAVIR W/LAMIVUDINE [Concomitant]
     Active Substance: ABACAVIR\LAMIVUDINE
     Indication: ANTIRETROVIRAL THERAPY
     Dosage: UNK
  24. ROSUVASTATIN. [Concomitant]
     Active Substance: ROSUVASTATIN
     Indication: HYPERTRIGLYCERIDAEMIA
  25. ATORVASTATIN [Suspect]
     Active Substance: ATORVASTATIN
     Indication: HIV INFECTION
  26. ATAZANAVIR. [Concomitant]
     Active Substance: ATAZANAVIR SULFATE
     Indication: HIV INFECTION
  27. BIOCARDINE OMEGA 3 [Concomitant]
     Active Substance: DOCONEXENT\ICOSAPENT\OMEGA-3 FATTY ACIDS
     Dosage: UNK
     Route: 065
  28. VIREAD [Concomitant]
     Active Substance: TENOFOVIR DISOPROXIL FUMARATE
     Indication: HIV INFECTION
  29. EMTRICITABINE [Concomitant]
     Active Substance: EMTRICITABINE
     Indication: HIV INFECTION
     Dosage: UNK
     Route: 065
  30. DARUNAVIR [Concomitant]
     Active Substance: DARUNAVIR
     Indication: ANTIRETROVIRAL THERAPY
  31. FENOFIBRATE. [Concomitant]
     Active Substance: FENOFIBRATE
     Indication: HYPERTRIGLYCERIDAEMIA
  32. ATORVASTATIN [Suspect]
     Active Substance: ATORVASTATIN
     Indication: HYPERTRIGLYCERIDAEMIA
  33. LAMIVUDINE. [Concomitant]
     Active Substance: LAMIVUDINE
     Dosage: UNK
     Route: 065
  34. EMTRIVA [Concomitant]
     Active Substance: EMTRICITABINE
     Indication: HIV INFECTION

REACTIONS (3)
  - Coronary artery disease [Unknown]
  - Myocardial infarction [Unknown]
  - Hypertriglyceridaemia [Recovering/Resolving]

NARRATIVE: CASE EVENT DATE: 20120822
